FAERS Safety Report 6035321-2 (Version None)
Quarter: 2009Q1

REPORT INFORMATION
  Report Type: 
  Country: None (occurrence: None)
  Receive Date: 20090108
  Receipt Date: 20081223
  Transmission Date: 20090719
  Serious: Yes (Other)
  Sender: FDA-Public Use
  Company Number: 2009AL000049

PATIENT
  Age: 77 Year
  Sex: Female

DRUGS (7)
  1. MIRTAZAPINE [Suspect]
     Indication: DEPRESSION
     Dosage: 45 MG;UNK;PO
     Route: 048
     Dates: start: 20081130
  2. MIRTAZAPINE [Suspect]
     Indication: DEPRESSION
     Dosage: 30 MG;UNK;PO
     Route: 048
     Dates: start: 20081020
  3. PRAMIPEXOLE DIHYDROCHLORIDE [Concomitant]
  4. FELODIPINE [Concomitant]
  5. ANASTROZOLE [Concomitant]
  6. ATENOLOL [Concomitant]
  7. CANDESARTAN [Concomitant]

REACTIONS (2)
  - DRUG INTERACTION [None]
  - FEMALE ORGASMIC DISORDER [None]
